FAERS Safety Report 7804961-X (Version None)
Quarter: 2011Q4

REPORT INFORMATION
  Report Type: 
  Country: None (occurrence: None)
  Receive Date: 20111010
  Receipt Date: 20110927
  Transmission Date: 20120403
  Serious: Yes (Other)
  Sender: FDA-Public Use
  Company Number: PHHY2011BR85832

PATIENT
  Age: 63 Year
  Sex: Male

DRUGS (5)
  1. GLYBURIDE [Suspect]
     Dosage: 5 MG, BID
  2. ATENOLOL [Suspect]
     Dosage: 1 DF, UNK
  3. METFORMIN HYDROCHLORIDE [Suspect]
     Dosage: 1 DF, BID
  4. HYDROCHLOROTHIAZIDE [Suspect]
     Dosage: 1 DF, UNK
  5. LOSARTAN POTASSIUM [Suspect]
     Dosage: 1 DF, UNK

REACTIONS (6)
  - DIASTOLIC DYSFUNCTION [None]
  - BLOOD GLUCOSE INCREASED [None]
  - GLYCOSYLATED HAEMOGLOBIN INCREASED [None]
  - BUNDLE BRANCH BLOCK LEFT [None]
  - MICROALBUMINURIA [None]
  - HYPERTENSION [None]
